FAERS Safety Report 14819590 (Version 1)
Quarter: 2018Q2

REPORT INFORMATION
  Report Type: Spontaneous
  Country: US (occurrence: US)
  Receive Date: 20180427
  Receipt Date: 20180427
  Transmission Date: 20180711
  Serious: No
  Sender: FDA-Public Use
  Company Number: US-BAYER-2018-079631

PATIENT
  Sex: Male

DRUGS (2)
  1. GAS-X [Concomitant]
     Active Substance: DIMETHICONE
  2. MIRALAX [Suspect]
     Active Substance: POLYETHYLENE GLYCOL 3350
     Indication: INTESTINAL OBSTRUCTION
     Dosage: UNK
     Route: 048

REACTIONS (7)
  - Flatulence [Unknown]
  - Insomnia [Unknown]
  - Therapeutic response unexpected [Unknown]
  - Abdominal discomfort [Unknown]
  - Product use in unapproved indication [Unknown]
  - Product use issue [Unknown]
  - Product prescribing issue [Unknown]
